FAERS Safety Report 24077010 (Version 2)
Quarter: 2024Q3

REPORT INFORMATION
  Report Type: Spontaneous
  Country: US (occurrence: US)
  Receive Date: 20240711
  Receipt Date: 20240711
  Transmission Date: 20241017
  Serious: Yes (Other)
  Sender: ROCHE
  Company Number: US-ROCHE-10000015435

PATIENT
  Age: 63 Year
  Sex: Female

DRUGS (2)
  1. BEVACIZUMAB [Suspect]
     Active Substance: BEVACIZUMAB
     Indication: Glioblastoma
     Route: 065
  2. LOMUSTINE [Suspect]
     Active Substance: LOMUSTINE
     Indication: Glioblastoma
     Route: 065

REACTIONS (2)
  - Metastases to lung [Unknown]
  - Neutropenia [Unknown]
